FAERS Safety Report 21789970 (Version 1)
Quarter: 2022Q4

REPORT INFORMATION
  Report Type: Report from Study
  Country: GB (occurrence: GB)
  Receive Date: 20221228
  Receipt Date: 20221228
  Transmission Date: 20230113
  Serious: Yes (Hospitalization, Other)
  Sender: FDA-Public Use
  Company Number: GB-ABBVIE-4239299

PATIENT
  Sex: Female

DRUGS (14)
  1. CYTARABINE [Suspect]
     Active Substance: CYTARABINE
     Dosage: 34 MG/M2
     Route: 050
     Dates: start: 20220819, end: 20221212
  2. VENETOCLAX [Suspect]
     Active Substance: VENETOCLAX
     Dosage: 100 MG
     Route: 050
     Dates: start: 20220819, end: 20221205
  3. ACYCLOVIR ABBOTT VIAL [Concomitant]
     Indication: Antiviral treatment
     Dosage: 400 MG
     Route: 050
  4. ATORVASTATIN [Concomitant]
     Active Substance: ATORVASTATIN
     Indication: Blood cholesterol increased
     Dosage: 20 MG
     Route: 050
     Dates: start: 20221129
  5. OXETACAINE [Concomitant]
     Active Substance: OXETHAZAINE
     Indication: Gastritis
     Dosage: SUSPENSION; TIME INTERVAL: 0.25 D
     Route: 050
     Dates: start: 20220906
  6. LEVOFLOXACIN [Concomitant]
     Active Substance: LEVOFLOXACIN
     Indication: Neutropenia
     Dosage: 500 MG
     Route: 050
  7. RAMIPRIL [Concomitant]
     Active Substance: RAMIPRIL
     Indication: Essential hypertension
     Dosage: UNK
     Dates: start: 20210317
  8. POLYETHYLENE GLYCOLS [Concomitant]
     Active Substance: POLYETHYLENE GLYCOLS
     Dosage: UNK, 1X/DAY
     Route: 050
     Dates: start: 20220906
  9. ASPIRIN [Concomitant]
     Active Substance: ASPIRIN
     Indication: Cardiovascular event prophylaxis
     Dosage: TIME INTERVAL: 0.25 D
     Route: 050
     Dates: start: 20220906
  10. COCODAMOL [Concomitant]
     Active Substance: ACETAMINOPHEN\CODEINE PHOSPHATE
     Indication: Headache
     Dosage: 30 MG, 1X/DAY
     Route: 050
     Dates: start: 20180919
  11. HYPROMELLOSES [Concomitant]
     Active Substance: HYPROMELLOSES
     Indication: Dry eye
     Dosage: TIME INTERVAL: 0.25 D
     Dates: start: 20220906
  12. ALLOPURINOL [Concomitant]
     Active Substance: ALLOPURINOL
     Indication: Blood uric acid increased
     Dosage: 300 MG
     Route: 050
  13. CYANOCOBALAMIN [Concomitant]
     Active Substance: CYANOCOBALAMIN
     Indication: Vitamin B12 deficiency
     Dosage: TIME INTERVAL: 0.33 D
     Route: 050
     Dates: start: 20220726
  14. BENZYDAMINE [Concomitant]
     Active Substance: BENZYDAMINE
     Indication: Oropharyngeal pain
     Dosage: TIME INTERVAL: 0.25 D
     Route: 050
     Dates: start: 20220906

REACTIONS (1)
  - Hypokalaemia [Recovered/Resolved]

NARRATIVE: CASE EVENT DATE: 20221209
